FAERS Safety Report 9280740 (Version 1)
Quarter: 2013Q2

REPORT INFORMATION
  Report Type: Spontaneous
  Country: GB (occurrence: None)
  Receive Date: 20130503
  Receipt Date: 20130503
  Transmission Date: 20140414
  Serious: Yes (Life-Threatening)
  Sender: FDA-Public Use
  Company Number: AUR-APL-2013-03293

PATIENT
  Age: 6 Hour
  Sex: Female
  Weight: 2.47 kg

DRUGS (5)
  1. QUETIAPINE [Suspect]
     Indication: PERSONALITY DISORDER
     Route: 064
  2. SERTRALINE [Suspect]
     Indication: INTENTIONAL SELF-INJURY
     Route: 064
     Dates: start: 20130301
  3. SERTRALINE [Suspect]
     Indication: DEPRESSION
     Route: 064
     Dates: start: 20130301
  4. DIAZEPAM (DIAZEPAM) [Suspect]
     Indication: PRODUCT USED FOR UNKNOWN INDICATION
     Route: 064
  5. ZOPICLONE (ZOPICLONE) [Suspect]
     Indication: PRODUCT USED FOR UNKNOWN INDICATION
     Route: 064

REACTIONS (5)
  - Maternal drugs affecting foetus [None]
  - Floppy infant [None]
  - Skin discolouration [None]
  - Unresponsive to stimuli [None]
  - Apnoea neonatal [None]
